FAERS Safety Report 5491747-7 (Version None)
Quarter: 2007Q4

REPORT INFORMATION
  Report Type: 
  Country: None (occurrence: None)
  Receive Date: 20071022
  Receipt Date: 20071015
  Transmission Date: 20080405
  Serious: Yes (Death, Hospitalization)
  Sender: FDA-Public Use
  Company Number: US-BRISTOL-MYERS SQUIBB COMPANY-13941745

PATIENT
  Age: 57 Year
  Sex: Female
  Weight: 58 kg

DRUGS (4)
  1. CYTOXAN [Suspect]
     Indication: BREAST CANCER
     Route: 042
     Dates: start: 20070821, end: 20070821
  2. ADRIAMYCIN PFS [Suspect]
     Indication: BREAST CANCER
     Route: 042
     Dates: start: 20070821, end: 20070821
  3. TAXOTERE [Suspect]
     Route: 041
     Dates: start: 20070821, end: 20070821
  4. NEULASTA [Concomitant]
     Dates: start: 20070822

REACTIONS (3)
  - COLITIS ISCHAEMIC [None]
  - DEATH [None]
  - SEPSIS [None]
